FAERS Safety Report 4672426-2 (Version None)
Quarter: 2005Q2

REPORT INFORMATION
  Report Type: 
  Country: None (occurrence: None)
  Receive Date: 20050523
  Receipt Date: 20050523
  Transmission Date: 20051028
  Serious: Yes (Life-Threatening, Hospitalization, Disabling)
  Sender: FDA-Public Use
  Company Number: None

PATIENT
  Sex: Female
  Weight: 72.5755 kg

DRUGS (1)
  1. TAXOL [Suspect]

REACTIONS (9)
  - BLOOD PRESSURE FLUCTUATION [None]
  - CHEST PAIN [None]
  - CONTRAINDICATION TO MEDICAL TREATMENT [None]
  - DIARRHOEA [None]
  - DIZZINESS [None]
  - HYPERSENSITIVITY [None]
  - IATROGENIC INJURY [None]
  - NAUSEA [None]
  - URTICARIA [None]
